FAERS Safety Report 6242707-X (Version None)
Quarter: 2009Q2

REPORT INFORMATION
  Report Type: 
  Country: None (occurrence: None)
  Receive Date: 20090624
  Receipt Date: 20090617
  Transmission Date: 20091009
  Serious: Yes (Death, Other)
  Sender: FDA-Public Use
  Company Number: PHHY2009BR24292

PATIENT
  Sex: Male
  Weight: 120 kg

DRUGS (4)
  1. DIOVAN HCT [Suspect]
     Indication: HYPERTENSION
     Dosage: 1 TABLET IN THE MORNING
     Route: 048
     Dates: start: 20080601
  2. DIOVAN HCT [Suspect]
     Dosage: 2 TABLETS DAILY
     Route: 048
     Dates: end: 20090324
  3. MELLARIL [Concomitant]
     Indication: BORDERLINE PERSONALITY DISORDER
     Dosage: 1 TABLET DAILY
     Route: 048
     Dates: end: 20090324
  4. PROMETHAZINE HCL [Concomitant]
     Indication: BORDERLINE PERSONALITY DISORDER
     Dosage: 1 TABLET DAILY
     Route: 048
     Dates: end: 20090324

REACTIONS (6)
  - ACUTE MYOCARDIAL INFARCTION [None]
  - CARDIOVASCULAR DISORDER [None]
  - ERYSIPELAS [None]
  - HYPERCHOLESTEROLAEMIA [None]
  - HYPERTENSION [None]
  - OEDEMA PERIPHERAL [None]
